FAERS Safety Report 17940656 (Version 3)
Quarter: 2020Q2

REPORT INFORMATION
  Report Type: Spontaneous
  Country: None (occurrence: FR)
  Receive Date: 20200625
  Receipt Date: 20200630
  Transmission Date: 20200714
  Serious: Yes (Hospitalization, Other)
  Sender: FDA-Public Use
  Company Number: FR-SA-2020SA152465

PATIENT

DRUGS (23)
  1. DACARBAZINE. [Interacting]
     Active Substance: DACARBAZINE
     Dosage: 730 MG
     Route: 064
     Dates: start: 20171108
  2. ENOXAPARIN SODIUM. [Suspect]
     Active Substance: ENOXAPARIN SODIUM
     Indication: PRODUCT USED FOR UNKNOWN INDICATION
     Dosage: 4000 INTERNATIONAL UNIT, BID
     Route: 064
     Dates: start: 2017
  3. BLEOMYCIN HYDROCHLORIDE [Interacting]
     Active Substance: BLEOMYCIN HYDROCHLORIDE
     Dosage: 19.2 MG
     Route: 064
  4. GLUCOSE [Suspect]
     Active Substance: DEXTROSE
     Dosage: 20 ML, QD
     Route: 064
     Dates: start: 20171108
  5. DOXORUBICIN [Interacting]
     Active Substance: DOXORUBICIN
     Dosage: 48 MG
     Route: 064
  6. VINBLASTINE SULFATE. [Interacting]
     Active Substance: VINBLASTINE SULFATE
     Dosage: 10 MG
     Route: 064
  7. ONDANSETRON [Interacting]
     Active Substance: ONDANSETRON
     Indication: PROPHYLAXIS OF NAUSEA AND VOMITING
     Dosage: UNK
     Route: 064
  8. DOXORUBICIN [Interacting]
     Active Substance: DOXORUBICIN
     Indication: HODGKIN^S DISEASE
     Dosage: 25 MG/M2, QD
     Route: 064
     Dates: start: 20171108
  9. PREDNISONE. [Interacting]
     Active Substance: PREDNISONE
     Indication: PRODUCT USED FOR UNKNOWN INDICATION
     Dosage: 40 MILLIGRAM, QD
     Route: 064
     Dates: start: 201711
  10. SODIUM CHLORIDE. [Suspect]
     Active Substance: SODIUM CHLORIDE
     Dosage: 20 ML, QD
     Route: 064
     Dates: start: 20171108
  11. GLUCOSE [Suspect]
     Active Substance: DEXTROSE
     Dosage: 20 ML, QD
     Route: 064
     Dates: start: 20171108
  12. DEXAMETHASONE. [Interacting]
     Active Substance: DEXAMETHASONE
     Indication: HODGKIN^S DISEASE
     Dosage: 10 MG, QD
     Route: 064
     Dates: start: 20171108
  13. DEXAMETHASONE. [Interacting]
     Active Substance: DEXAMETHASONE
     Indication: PROPHYLAXIS OF NAUSEA AND VOMITING
  14. VINBLASTINE SULFATE. [Interacting]
     Active Substance: VINBLASTINE SULFATE
     Indication: HODGKIN^S DISEASE
     Dosage: 5 MG/M2, QD
     Route: 064
     Dates: start: 20171108
  15. VALACICLOVIR [Interacting]
     Active Substance: VALACYCLOVIR HYDROCHLORIDE
     Indication: PRODUCT USED FOR UNKNOWN INDICATION
     Dosage: 500 MG, QD
     Route: 064
     Dates: start: 2017
  16. ONDANSETRON [Interacting]
     Active Substance: ONDANSETRON
     Indication: FOETAL EXPOSURE DURING PREGNANCY
     Dosage: 16 MILLIGRAM, QD, ORODISPERSABLE FILM
     Route: 064
     Dates: start: 20171108, end: 201711
  17. GLUCOSE [Suspect]
     Active Substance: DEXTROSE
     Indication: HODGKIN^S DISEASE
     Dosage: 250 ML, QD
     Route: 064
     Dates: start: 20171108
  18. LANSOPRAZOLE. [Interacting]
     Active Substance: LANSOPRAZOLE
     Indication: PRODUCT USED FOR UNKNOWN INDICATION
     Dosage: 30 MILLIGRAM, QD
     Route: 064
     Dates: start: 2017
  19. BLEOMYCIN HYDROCHLORIDE [Interacting]
     Active Substance: BLEOMYCIN HYDROCHLORIDE
     Indication: HODGKIN^S DISEASE
     Dosage: 10 MG/M2, QD, INJECTION
     Route: 064
     Dates: start: 20171108
  20. DACARBAZINE. [Interacting]
     Active Substance: DACARBAZINE
     Indication: HODGKIN^S DISEASE
     Dosage: 375 MG/M2, QD, POWDER FOR INFUSION
     Route: 064
     Dates: start: 20171108
  21. AMOXICILLIN. [Interacting]
     Active Substance: AMOXICILLIN
     Indication: ANTIBIOTIC THERAPY
     Dosage: UNK
     Route: 064
  22. PREDNISONE. [Interacting]
     Active Substance: PREDNISONE
     Dosage: 80 MILLIGRAM, QD
     Route: 064
  23. SODIUM CHLORIDE. [Suspect]
     Active Substance: SODIUM CHLORIDE
     Indication: HODGKIN^S DISEASE
     Dosage: 20 ML, QD
     Route: 064
     Dates: start: 20171108

REACTIONS (6)
  - Premature baby [Unknown]
  - Troponin increased [Unknown]
  - Foetal exposure during pregnancy [Unknown]
  - Cardiac dysfunction [Recovered/Resolved]
  - Cardiotoxicity [Recovered/Resolved]
  - Drug interaction [Unknown]

NARRATIVE: CASE EVENT DATE: 2017
